FAERS Safety Report 9487164 (Version 2)
Quarter: 2013Q3

REPORT INFORMATION
  Report Type: Spontaneous
  Country: RU (occurrence: RU)
  Receive Date: 20130829
  Receipt Date: 20130829
  Transmission Date: 20140515
  Serious: Yes (Other)
  Sender: FDA-Public Use
  Company Number: RU-BANPHARM-20131621

PATIENT
  Sex: Female

DRUGS (1)
  1. VALPROIC ACID UNKNOWN PRODUCT [Suspect]
     Indication: PRODUCT USED FOR UNKNOWN INDICATION
     Dosage: UNKNOWN,

REACTIONS (1)
  - Convulsion [Recovered/Resolved]
